FAERS Safety Report 15662064 (Version 1)
Quarter: 2018Q4

REPORT INFORMATION
  Report Type: Report from Study
  Country: PH (occurrence: PH)
  Receive Date: 20181127
  Receipt Date: 20181127
  Transmission Date: 20190205
  Serious: Yes (Hospitalization)
  Sender: FDA-Public Use
  Company Number: PHHY2018PH165653

PATIENT
  Age: 31 Year
  Sex: Male

DRUGS (1)
  1. GLIVEC [Suspect]
     Active Substance: IMATINIB MESYLATE
     Indication: CHRONIC MYELOID LEUKAEMIA
     Dosage: 400 MG, UNK
     Route: 048
     Dates: start: 20111012

REACTIONS (4)
  - Drug intolerance [Unknown]
  - Drug resistance [Unknown]
  - Gait inability [Unknown]
  - Thrombosis [Unknown]

NARRATIVE: CASE EVENT DATE: 20181105
